FAERS Safety Report 12620222 (Version 1)
Quarter: 2016Q3

REPORT INFORMATION
  Report Type: Spontaneous
  Country: GB (occurrence: GB)
  Receive Date: 20160803
  Receipt Date: 20160803
  Transmission Date: 20161109
  Serious: Yes (Other)
  Sender: FDA-Public Use
  Company Number: GB-TEVA-679677ACC

PATIENT
  Age: 24 Year
  Weight: 69.85 kg

DRUGS (1)
  1. CITALOPRAM [Suspect]
     Active Substance: CITALOPRAM HYDROBROMIDE
     Indication: DEPRESSION
     Dosage: 10-30MG
     Route: 048
     Dates: start: 201503

REACTIONS (8)
  - Seizure [Recovering/Resolving]
  - Paralysis [Unknown]
  - Tremor [Unknown]
  - Muscle twitching [Unknown]
  - Petit mal epilepsy [Unknown]
  - Aphasia [Unknown]
  - Activities of daily living impaired [Unknown]
  - Impaired work ability [Unknown]

NARRATIVE: CASE EVENT DATE: 201507
